FAERS Safety Report 17932382 (Version 1)
Quarter: 2020Q2

REPORT INFORMATION
  Report Type: Spontaneous
  Country: US (occurrence: US)
  Receive Date: 20200624
  Receipt Date: 20200624
  Transmission Date: 20200714
  Serious: No
  Sender: FDA-Public Use
  Company Number: US-PRINSTON PHARMACEUTICAL INC.-2019PRN00638

PATIENT
  Age: 81 Year
  Sex: Female
  Weight: 47.62 kg

DRUGS (10)
  1. LEVOTHYROXINE. [Concomitant]
     Active Substance: LEVOTHYROXINE
  2. FISH OIL [Concomitant]
     Active Substance: FISH OIL
  3. UNSPECIFIED EYE DROP [Concomitant]
     Active Substance: UNSPECIFIED INGREDIENT
  4. ATORVASTATIN [Concomitant]
     Active Substance: ATORVASTATIN
  5. ASPIRIN. [Concomitant]
     Active Substance: ASPIRIN
  6. OCUVITE [Concomitant]
     Active Substance: VITAMINS
  7. UNSPECIFIED EYE DROP [Concomitant]
     Active Substance: UNSPECIFIED INGREDIENT
  8. LEXAPRO [Concomitant]
     Active Substance: ESCITALOPRAM OXALATE
  9. LOSARTAN POTASSIUM. [Suspect]
     Active Substance: LOSARTAN POTASSIUM
     Indication: HYPERTENSION
     Dosage: 25 MG, 1X/DAY
     Route: 048
     Dates: start: 201812
  10. VITAMIN D [Concomitant]
     Active Substance: VITAMIN D NOS

REACTIONS (2)
  - Expired product administered [Not Recovered/Not Resolved]
  - Back pain [Recovered/Resolved]

NARRATIVE: CASE EVENT DATE: 20190622
